FAERS Safety Report 21614418 (Version 1)
Quarter: 2022Q4

REPORT INFORMATION
  Report Type: Other
  Country: BE (occurrence: BE)
  Receive Date: 20221118
  Receipt Date: 20221118
  Transmission Date: 20230113
  Serious: Yes (Death, Hospitalization)
  Sender: FDA-Public Use
  Company Number: BE-ALVOGEN-2022088642

PATIENT
  Age: 61 Year
  Sex: Female

DRUGS (1)
  1. FLECAINIDE [Suspect]
     Active Substance: FLECAINIDE
     Indication: Product used for unknown indication

REACTIONS (6)
  - Toxicity to various agents [Fatal]
  - Pulmonary toxicity [Unknown]
  - Sepsis [Fatal]
  - Respiratory distress [Unknown]
  - Organising pneumonia [Unknown]
  - Pneumonitis [Unknown]
